FAERS Safety Report 6406615-3 (Version None)
Quarter: 2009Q4

REPORT INFORMATION
  Report Type: 
  Country: None (occurrence: None)
  Receive Date: 20091014
  Receipt Date: 20091003
  Transmission Date: 20100525
  Serious: Yes (Hospitalization)
  Sender: FDA-Public Use
  Company Number: 2009AP004018

PATIENT
  Age: 54 Year
  Sex: Female

DRUGS (7)
  1. CITALOPRAM HYDROBROMIDE [Suspect]
     Indication: MAJOR DEPRESSION
     Dosage: 20 MG; QD
  2. CYAMEMAZINE (CYAMEMAZINE) [Suspect]
     Indication: MAJOR DEPRESSION
     Dosage: 25 MG; QD
  3. DIPOTASSIUM CLORAZEPATE (CLORAZEPATE DIPOTASSIUM) [Suspect]
     Indication: THERAPY CESSATION
     Dosage: 100MG, QD; 20MG, QD
  4. ACAMPROSATE CALCIUM (ACAMPROSATE CALCIUM) [Suspect]
     Dosage: 1332MG; QD
  5. NICARDIPINE HCL [Concomitant]
  6. THIAMINE (THIAMINE) [Concomitant]
  7. PYRIDOXINE (PYRIDOXINE) [Concomitant]

REACTIONS (4)
  - AGITATION [None]
  - BIPOLAR II DISORDER [None]
  - CATATONIA [None]
  - WITHDRAWAL SYNDROME [None]
